FAERS Safety Report 24130444 (Version 6)
Quarter: 2024Q4

REPORT INFORMATION
  Report Type: Spontaneous
  Country: FR (occurrence: FR)
  Receive Date: 20240724
  Receipt Date: 20241015
  Transmission Date: 20250114
  Serious: Yes (Other)
  Sender: ROCHE
  Company Number: FR-ROCHE-10000027789

PATIENT
  Age: 90 Year
  Sex: Female

DRUGS (3)
  1. VABYSMO [Suspect]
     Active Substance: FARICIMAB-SVOA
     Indication: Age-related macular degeneration
     Dosage: DATE OF LAST VABYSMO INJECTION: 20/JUN/2024
     Route: 065
     Dates: end: 20240620
  2. LUCENTIS [Suspect]
     Active Substance: RANIBIZUMAB
     Indication: Age-related macular degeneration
     Route: 065
  3. EYLEA [Concomitant]
     Active Substance: AFLIBERCEPT
     Indication: Age-related macular degeneration

REACTIONS (5)
  - Ocular hypertension [Unknown]
  - Drug ineffective [Unknown]
  - Iridocyclitis [Recovering/Resolving]
  - Hypertonia [Recovering/Resolving]
  - Corneal oedema [Recovering/Resolving]
